FAERS Safety Report 6786855-4 (Version None)
Quarter: 2010Q2

REPORT INFORMATION
  Report Type: 
  Country: None (occurrence: None)
  Receive Date: 20100623
  Receipt Date: 20100611
  Transmission Date: 20101027
  Serious: No
  Sender: FDA-Public Use
  Company Number: US-B.I. PHARMACEUTICALS,INC./RIDGEFIELD-2010-BP-04887BP

PATIENT
  Sex: Female

DRUGS (7)
  1. SPIRIVA [Suspect]
     Indication: LUNG DISORDER
     Dosage: 18 MCG
     Route: 055
     Dates: start: 20090901, end: 20100201
  2. SPIRIVA [Suspect]
     Dosage: 18 MCG
     Route: 055
     Dates: start: 20100301, end: 20100427
  3. METOPROLOL TARTRATE [Concomitant]
     Indication: HEART RATE IRREGULAR
  4. NEXIUM [Concomitant]
  5. EVISTA [Concomitant]
     Indication: BREAST CANCER
     Dates: start: 20020101
  6. TRIAMTERENE [Concomitant]
     Indication: HYPERTENSION
  7. MEDICATION NOT FURTHER SPECIFIED [Concomitant]
     Indication: HYPOTHYROIDISM

REACTIONS (2)
  - CROUP INFECTIOUS [None]
  - UPPER RESPIRATORY TRACT INFECTION [None]
